FAERS Safety Report 20475834 (Version 1)
Quarter: 2022Q1

REPORT INFORMATION
  Report Type: Spontaneous
  Country: GB (occurrence: GB)
  Receive Date: 20220215
  Receipt Date: 20220215
  Transmission Date: 20220424
  Serious: Yes (Hospitalization, Other)
  Sender: FDA-Public Use
  Company Number: GB-JNJFOC-20220152179

PATIENT
  Age: 60 Year
  Sex: Female

DRUGS (4)
  1. ESTRADIOL [Suspect]
     Active Substance: ESTRADIOL
     Indication: Product used for unknown indication
     Dosage: UNK
     Route: 065
  2. ESTRADIOL [Suspect]
     Active Substance: ESTRADIOL
     Indication: Product used for unknown indication
     Dosage: 3 DF, TID
     Route: 062
     Dates: start: 2014
  3. TOCOPHEROL ACETATE [Suspect]
     Active Substance: .ALPHA.-TOCOPHEROL ACETATE
     Indication: Product used for unknown indication
     Route: 065
  4. LEVOTHYROXINE [Concomitant]
     Active Substance: LEVOTHYROXINE
     Indication: Product used for unknown indication

REACTIONS (10)
  - Cardiac failure [Unknown]
  - Stress cardiomyopathy [Unknown]
  - Suicide attempt [Unknown]
  - Alopecia [Unknown]
  - Insomnia [Unknown]
  - General physical condition abnormal [Unknown]
  - Hyperthyroidism [Unknown]
  - Hypertension [Unknown]
  - Pneumonia [Unknown]
  - Palpitations [Unknown]

NARRATIVE: CASE EVENT DATE: 20201201
